FAERS Safety Report 12596100 (Version 2)
Quarter: 2017Q1

REPORT INFORMATION
  Report Type: Report from Study
  Country: US (occurrence: US)
  Receive Date: 20160726
  Receipt Date: 20170208
  Transmission Date: 20170428
  Serious: No
  Sender: FDA-Public Use
  Company Number: US-AMGEN-USASL2016021699

PATIENT
  Age: 68 Year
  Sex: Male

DRUGS (7)
  1. KYPROLIS [Suspect]
     Active Substance: CARFILZOMIB
     Dosage: UNK
     Route: 065
     Dates: start: 201603
  2. NEULASTA [Suspect]
     Active Substance: PEGFILGRASTIM
     Indication: PRODUCT USED FOR UNKNOWN INDICATION
     Dosage: UNK
     Route: 065
  3. DEXAMETHASONE. [Concomitant]
     Active Substance: DEXAMETHASONE
     Dosage: 20 MG, UNK
  4. KYPROLIS [Suspect]
     Active Substance: CARFILZOMIB
     Dosage: 60 MG, 2 TIMES/WK
     Route: 065
     Dates: start: 201601
  5. COUMADIN [Concomitant]
     Active Substance: WARFARIN SODIUM
     Indication: PLASMA CELL MYELOMA
     Dosage: 9 MG, QD
     Route: 048
  6. KYPROLIS [Suspect]
     Active Substance: CARFILZOMIB
     Indication: PLASMA CELL MYELOMA
     Dosage: 3 WEEKS, THEN OFF 1 WEEK
     Route: 065
     Dates: start: 20160111, end: 201602
  7. KYPROLIS [Suspect]
     Active Substance: CARFILZOMIB
     Dosage: 60
     Route: 065
     Dates: start: 201602

REACTIONS (16)
  - Blood potassium decreased [Unknown]
  - Discomfort [Unknown]
  - Foreign body sensation in eyes [Unknown]
  - Eye pain [Unknown]
  - Mobility decreased [Unknown]
  - Chest discomfort [Unknown]
  - Tremor [Unknown]
  - Sleep disorder due to a general medical condition [Unknown]
  - Pain [Unknown]
  - Muscle spasms [Unknown]
  - Blood sodium decreased [Unknown]
  - White blood cell count decreased [Unknown]
  - Anxiety [Unknown]
  - Dyspnoea [Unknown]
  - Fatigue [Unknown]
  - Feeling abnormal [Unknown]

NARRATIVE: CASE EVENT DATE: 2016
